FAERS Safety Report 6939548-4 (Version None)
Quarter: 2010Q3

REPORT INFORMATION
  Report Type: 
  Country: None (occurrence: None)
  Receive Date: 20100824
  Receipt Date: 20100726
  Transmission Date: 20110219
  Serious: Yes (Other)
  Sender: FDA-Public Use
  Company Number: PHEH2007US03752

PATIENT
  Sex: Male

DRUGS (1)
  1. ZOMETA [Suspect]

REACTIONS (11)
  - ANXIETY [None]
  - BACK PAIN [None]
  - DECREASED INTEREST [None]
  - GENERAL PHYSICAL HEALTH DETERIORATION [None]
  - INTERVERTEBRAL DISC PROTRUSION [None]
  - METASTASES TO BONE [None]
  - OSTEONECROSIS OF JAW [None]
  - PAIN [None]
  - PROSTATE CANCER [None]
  - RADICULOPATHY [None]
  - SPINAL DISORDER [None]
